FAERS Safety Report 13622657 (Version 2)
Quarter: 2017Q3

REPORT INFORMATION
  Report Type: Spontaneous
  Country: CH (occurrence: CH)
  Receive Date: 20170607
  Receipt Date: 20170814
  Transmission Date: 20171127
  Serious: Yes (Death, Hospitalization)
  Sender: FDA-Public Use
  Company Number: CH-ROCHE-1943243

PATIENT
  Age: 63 Year
  Sex: Female
  Weight: 61 kg

DRUGS (11)
  1. TAVEGYL [Concomitant]
     Active Substance: CLEMASTINE FUMARATE
  2. PREDNISONE. [Concomitant]
     Active Substance: PREDNISONE
  3. KADCYLA [Suspect]
     Active Substance: ADO-TRASTUZUMAB EMTANSINE
     Indication: HER-2 POSITIVE BREAST CANCER
     Dosage: MOST RECENT CYCLE ON 10/MAY/2017 OR 11/MAY/2017
     Route: 042
     Dates: start: 20130627, end: 20170519
  4. HERCEPTIN [Suspect]
     Active Substance: TRASTUZUMAB
     Indication: HER-2 POSITIVE BREAST CANCER
     Route: 065
     Dates: start: 201005, end: 201105
  5. HERCEPTIN [Suspect]
     Active Substance: TRASTUZUMAB
     Route: 065
     Dates: start: 201207
  6. CALCIMAGON D3 [Concomitant]
     Active Substance: CALCIUM\CHOLECALCIFEROL
  7. NAVELBINE [Concomitant]
     Active Substance: VINORELBINE TARTRATE
     Route: 065
     Dates: start: 201207, end: 201210
  8. LAXOBERON [Concomitant]
     Active Substance: SODIUM PICOSULFATE
  9. PANTOZOL (SWITZERLAND) [Concomitant]
     Active Substance: PANTOPRAZOLE SODIUM
  10. TAXOTERE [Concomitant]
     Active Substance: DOCETAXEL
     Route: 065
     Dates: start: 201005, end: 201008
  11. ELTROXIN [Concomitant]
     Active Substance: LEVOTHYROXINE

REACTIONS (5)
  - Epistaxis [Unknown]
  - Disseminated intravascular coagulation [Fatal]
  - Rectal haemorrhage [Unknown]
  - Pulmonary haemorrhage [Fatal]
  - Acute respiratory distress syndrome [Fatal]

NARRATIVE: CASE EVENT DATE: 2017
